FAERS Safety Report 5154303-6 (Version None)
Quarter: 2006Q4

REPORT INFORMATION
  Report Type: 
  Country: None (occurrence: None)
  Receive Date: 20061114
  Receipt Date: 20061103
  Transmission Date: 20070319
  Serious: Yes (Other)
  Sender: FDA-Public Use
  Company Number: GXKR2006NZ07055

PATIENT
  Age: 66 Year
  Sex: Female

DRUGS (6)
  1. OMEPRAZOLE [Suspect]
     Indication: DYSPEPSIA
  2. PREDNISONE TAB [Concomitant]
  3. GLIPIZIDE [Concomitant]
  4. FELODIPINE [Concomitant]
  5. FUROSEMIDE [Concomitant]
  6. CORTICOSTEROIDS (NO INGREDIENTS/SUBSTANCES) [Concomitant]

REACTIONS (2)
  - NEPHRITIS INTERSTITIAL [None]
  - RENAL FAILURE [None]
